FAERS Safety Report 9318821 (Version 3)
Quarter: 2013Q3

REPORT INFORMATION
  Report Type: Spontaneous
  Country: DE (occurrence: DE)
  Receive Date: 20130530
  Receipt Date: 20130910
  Transmission Date: 20140515
  Serious: Yes (Other)
  Sender: FDA-Public Use
  Company Number: DE-UCBSA-087156

PATIENT
  Age: 41 Year
  Sex: Female
  Weight: 85 kg

DRUGS (5)
  1. NEUPRO [Suspect]
     Indication: PARKINSON^S DISEASE
     Route: 062
     Dates: start: 20130411, end: 20130602
  2. NEUPRO [Suspect]
     Indication: PARKINSON^S DISEASE
     Route: 062
     Dates: end: 20130410
  3. NEUPRO [Suspect]
     Indication: PARKINSON^S DISEASE
     Route: 062
     Dates: start: 20121015
  4. AZILECT [Concomitant]
     Indication: PARKINSON^S DISEASE
     Dosage: DOSE: 1MG
     Route: 048
     Dates: start: 201205
  5. SIFROL RETARD [Concomitant]
     Dosage: UNKNOWN

REACTIONS (5)
  - Extrasystoles [Recovered/Resolved]
  - Sinus tachycardia [Recovered/Resolved]
  - Sleep attacks [Recovered/Resolved]
  - Heart rate increased [Unknown]
  - Palpitations [Recovered/Resolved]
